FAERS Safety Report 8508088-3 (Version None)
Quarter: 2012Q3

REPORT INFORMATION
  Report Type: 
  Country: None (occurrence: None)
  Receive Date: 20120713
  Receipt Date: 20120704
  Transmission Date: 20120928
  Serious: Yes (Congenital Anomaly)
  Sender: FDA-Public Use
  Company Number: JP-SANOFI-AVENTIS-2012SA049714

PATIENT
  Sex: Male

DRUGS (7)
  1. HEPARIN [Suspect]
     Route: 064
     Dates: start: 20100301, end: 20100301
  2. ALBUMIN (HUMAN) [Suspect]
     Route: 064
     Dates: start: 20100301, end: 20100301
  3. HERBAL PREPARATION [Suspect]
     Route: 064
     Dates: start: 20100301
  4. FUROSEMIDE [Suspect]
     Route: 064
     Dates: start: 20100301
  5. PREDNISOLONE [Suspect]
     Route: 064
     Dates: start: 20100301
  6. PREDNISOLONE [Suspect]
     Route: 064
     Dates: start: 20100101
  7. METHYLPREDNISOLONE SODIUM SUCCINATE [Suspect]
     Dosage: STEROID PULSE THERAPY
     Route: 064
     Dates: start: 20100301, end: 20100301

REACTIONS (3)
  - CONGENITAL BLADDER ANOMALY [None]
  - FOETAL EXPOSURE DURING PREGNANCY [None]
  - ABORTION [None]
